FAERS Safety Report 8877416 (Version 2)
Quarter: 2013Q4

REPORT INFORMATION
  Report Type: Spontaneous
  Country: US (occurrence: US)
  Receive Date: 20121024
  Receipt Date: 20131028
  Transmission Date: 20140711
  Serious: No
  Sender: FDA-Public Use
  Company Number: US-PFIZER INC-2012261771

PATIENT
  Sex: Female

DRUGS (2)
  1. LYRICA [Suspect]
     Dosage: UNK, 3X/DAY
     Dates: end: 20131020
  2. LYRICA [Suspect]
     Dosage: UNK, 2X/DAY
     Dates: start: 20131021

REACTIONS (3)
  - Emotional disorder [Unknown]
  - Cough [Unknown]
  - Intentional drug misuse [Not Recovered/Not Resolved]
